FAERS Safety Report 9882306 (Version 1)
Quarter: 2014Q1

REPORT INFORMATION
  Report Type: Spontaneous
  Country: US (occurrence: US)
  Receive Date: 20140207
  Receipt Date: 20140207
  Transmission Date: 20141002
  Serious: Yes (Death, Hospitalization)
  Sender: FDA-Public Use
  Company Number: US-GLAXOSMITHKLINE-A1058701A

PATIENT
  Age: 89 Year
  Sex: Female

DRUGS (18)
  1. ADVAIR HFA [Suspect]
     Indication: RESPIRATORY DISORDER
     Dosage: 1PUFF TWICE PER DAY
     Route: 055
  2. VENTOLIN HFA [Suspect]
     Indication: RESPIRATORY DISORDER
     Dosage: 2PUFF AS REQUIRED
     Route: 055
  3. CHERATUSSIN [Concomitant]
  4. ALBUTEROL NEBULIZER SOLUTION [Concomitant]
  5. CARVEDILOL [Concomitant]
  6. LEVOTHYROXINE [Concomitant]
  7. LOSARTAN POTASSIUM [Concomitant]
  8. OMEPRAZOLE [Concomitant]
  9. RANITIDINE [Concomitant]
  10. ALENDRONATE [Concomitant]
  11. ANTIBIOTICS [Concomitant]
  12. ALPRAZOLAM [Concomitant]
  13. CARISOPRODOL [Concomitant]
  14. HYDROCODONE [Concomitant]
  15. ASPIRIN [Concomitant]
  16. EYE DROPS [Concomitant]
  17. VITAMINS [Concomitant]
  18. OXYGEN [Concomitant]

REACTIONS (7)
  - Death [Fatal]
  - Haemorrhage [Unknown]
  - Haemorrhage intracranial [Unknown]
  - Autopsy [Unknown]
  - Syncope [Unknown]
  - Head injury [Unknown]
  - Medical observation [Unknown]
